FAERS Safety Report 25533077 (Version 1)
Quarter: 2025Q3

REPORT INFORMATION
  Report Type: Report from Study
  Country: CH (occurrence: CH)
  Receive Date: 20250709
  Receipt Date: 20250709
  Transmission Date: 20251021
  Serious: Yes (Other)
  Sender: RANBAXY
  Company Number: CH-SUN PHARMACEUTICAL INDUSTRIES LTD-2025R1-515826

PATIENT
  Age: 26 Year

DRUGS (1)
  1. TEMOZOLOMIDE [Suspect]
     Active Substance: TEMOZOLOMIDE
     Indication: Paraganglion neoplasm
     Route: 065

REACTIONS (1)
  - Therapy partial responder [Unknown]
